FAERS Safety Report 7353237 (Version 5)
Quarter: 2012Q4

REPORT INFORMATION
  Report Type: 
  Country: US (occurrence: US)
  Receive Date: 20100413
  Receipt Date: 20120925
  Transmission Date: 20130627
  Serious: Yes (Life-Threatening, Hospitalization)
  Sender: FDA-Public Use
  Company Number: US-BAYER-201018685NA

PATIENT
  Age: 19 Year
  Sex: Female
  Weight: 58.96 kg

DRUGS (7)
  1. YAZ [Suspect]
     Indication: CONTRACEPTION
     Dosage: UNK
     Route: 048
     Dates: start: 20090710, end: 20091220
  2. YAZ [Suspect]
     Indication: PREMENSTRUAL SYNDROME
  3. YAZ [Suspect]
     Indication: PREMENSTRUAL SYNDROME
  4. YAZ [Suspect]
     Indication: HYPOMENORRHOEA
  5. YAZ [Suspect]
     Indication: DYSMENORRHOEA
  6. TYLENOL [Concomitant]
     Indication: PAIN
     Dosage: UNK UNK, PRN
  7. IBUPROFEN [Concomitant]
     Dosage: UNK UNK, PRN

REACTIONS (9)
  - Pulmonary embolism [None]
  - Deep vein thrombosis [None]
  - Cyanosis [None]
  - Haematoma [None]
  - Pain in extremity [None]
  - Anxiety [None]
  - Mental disorder [None]
  - Depression [None]
  - Fear [None]
